FAERS Safety Report 21209614 (Version 1)
Quarter: 2022Q3

REPORT INFORMATION
  Report Type: Spontaneous
  Country: DE (occurrence: DE)
  Receive Date: 20220813
  Receipt Date: 20220813
  Transmission Date: 20221026
  Serious: Yes (Other)
  Sender: FDA-Public Use
  Company Number: DE-NOVARTISPH-NVSC2022DE179752

PATIENT
  Age: 59 Year
  Sex: Female
  Weight: 91 kg

DRUGS (8)
  1. LEVETIRACETAM [Suspect]
     Active Substance: LEVETIRACETAM
     Indication: Product used for unknown indication
     Dosage: 2000 MG, QD  1 ONLY (MIX-UP)
     Route: 048
     Dates: start: 20210315, end: 20210315
  2. VIMPAT [Suspect]
     Active Substance: LACOSAMIDE
     Indication: Product used for unknown indication
     Dosage: 1 DOSAGE FORM, QD (1 TABLET, 1 ONLY (MIX-UP))
     Route: 048
     Dates: start: 20210315, end: 20210315
  3. METAMIZOLE [Suspect]
     Active Substance: METAMIZOLE
     Indication: Product used for unknown indication
     Dosage: 1 DOSAGE FORM, QD (1 TABLET, 1 ONLY (MIX-UP))
     Route: 048
     Dates: start: 20210315, end: 20210315
  4. OXYCODONE [Suspect]
     Active Substance: OXYCODONE
     Indication: Product used for unknown indication
     Dosage: 1 DOSAGE FORM, QD (1 TABLET, 1 ONLY (MIX-UP))
     Route: 048
     Dates: start: 20210315, end: 20210315
  5. CHOLECALCIFEROL [Suspect]
     Active Substance: CHOLECALCIFEROL
     Indication: Product used for unknown indication
     Dosage: 1 DOSAGE FORM, QD (1 TABLET, 1 ONLY (MIX-UP))
     Route: 048
     Dates: start: 20210315, end: 20210315
  6. MOVICOL [Suspect]
     Active Substance: POLYETHYLENE GLYCOL 3350\POTASSIUM CHLORIDE\SODIUM BICARBONATE\SODIUM CHLORIDE
     Indication: Product used for unknown indication
     Dosage: 1 DOSAGE FORM, 1 ONLY (1 SACHET, MIX-UP)
     Route: 048
     Dates: start: 20210315, end: 20210315
  7. TAVOR [Concomitant]
     Indication: Product used for unknown indication
     Dosage: 1 DOSAGE FORM (1 TABLET (MAINTENANCE MEDICATION))
     Route: 048
  8. VALPROIC ACID [Concomitant]
     Active Substance: VALPROIC ACID
     Indication: Product used for unknown indication
     Dosage: 1 DOSAGE FORM (1 TABLET, (MAINTENANCE MEDICATION))
     Route: 048

REACTIONS (4)
  - Oxygen saturation decreased [Recovering/Resolving]
  - Wrong product administered [Unknown]
  - Fatigue [Recovering/Resolving]
  - Somnolence [Recovering/Resolving]

NARRATIVE: CASE EVENT DATE: 20210315
